FAERS Safety Report 5336857-X (Version None)
Quarter: 2007Q2

REPORT INFORMATION
  Report Type: 
  Country: None (occurrence: None)
  Receive Date: 20070529
  Receipt Date: 20070521
  Transmission Date: 20071010
  Serious: Yes (Death, Life-Threatening, Other)
  Sender: FDA-Public Use
  Company Number: GB-JNJFOC-20040604702

PATIENT
  Sex: Female
  Weight: 55 kg

DRUGS (19)
  1. REMICADE [Suspect]
     Indication: RHEUMATOID ARTHRITIS
     Route: 042
  2. METHOTREXATE [Suspect]
     Indication: RHEUMATOID ARTHRITIS
  3. RITUXIMAB [Suspect]
     Indication: RHEUMATOID ARTHRITIS
  4. KINERET [Suspect]
     Indication: RHEUMATOID ARTHRITIS
  5. KINERET [Suspect]
     Indication: RHEUMATOID ARTHRITIS
     Route: 065
  6. PREDNISOLONE [Concomitant]
     Route: 048
     Dates: start: 19930101
  7. MORPHINE [Concomitant]
     Indication: RHEUMATOID ARTHRITIS
     Dosage: 10-20 MG 3-4 TIMES DAILY.
     Route: 048
  8. PENICILLAMINE [Concomitant]
     Indication: RHEUMATOID ARTHRITIS
  9. AZATHIOPRINE [Concomitant]
     Indication: RHEUMATOID ARTHRITIS
  10. CYCLOPHOSPHAMIDE [Concomitant]
     Indication: RHEUMATOID ARTHRITIS
  11. CYCLOSPORINE [Concomitant]
     Indication: RHEUMATOID ARTHRITIS
  12. IMMUNE GLOBULIN INTRAVENOUS (HUMAN) [Concomitant]
     Indication: RHEUMATOID ARTHRITIS
  13. HYDROXYCHLOROQUINE SULFATE [Concomitant]
     Indication: RHEUMATOID ARTHRITIS
  14. ILOPROST [Concomitant]
     Indication: RHEUMATOID ARTHRITIS
  15. LEFLUNOMIDE [Concomitant]
     Indication: RHEUMATOID ARTHRITIS
  16. METHYLPREDNISOLONE 16MG TAB [Concomitant]
     Indication: RHEUMATOID ARTHRITIS
  17. ISONIAZID [Concomitant]
     Route: 065
  18. HRT [Concomitant]
  19. LITHIUM CARBONATE [Concomitant]

REACTIONS (3)
  - METASTASES TO LUNG [None]
  - OVARIAN CANCER METASTATIC [None]
  - PLEURAL EFFUSION [None]
